FAERS Safety Report 4566891-9 (Version None)
Quarter: 2005Q1

REPORT INFORMATION
  Report Type: 
  Country: None (occurrence: None)
  Receive Date: 20050201
  Receipt Date: 20030408
  Transmission Date: 20050727
  Serious: Yes (Other)
  Sender: FDA-Public Use
  Company Number: US-BRISTOL-MYERS SQUIBB COMPANY-12233763

PATIENT
  Age: 51 Year
  Sex: Female

DRUGS (4)
  1. STADOL [Suspect]
     Route: 045
     Dates: start: 19990101, end: 19990901
  2. PHENERGAN [Concomitant]
  3. BUTALBITAL + CAFFEINE + ACETAMINOPHEN [Concomitant]
  4. DIAZEPAM [Concomitant]

REACTIONS (1)
  - DEPENDENCE [None]
